FAERS Safety Report 7762390 (Version 9)
Quarter: 2012Q4

REPORT INFORMATION
  Report Type: 
  Country: GB (occurrence: GB)
  Receive Date: 20110117
  Receipt Date: 20120927
  Transmission Date: 20130627
  Serious: Yes (Other)
  Sender: FDA-Public Use
  Company Number: PHFR2010GB02285

PATIENT
  Age: 32 Year
  Sex: Male

DRUGS (8)
  1. CLOZARIL [Suspect]
     Indication: SCHIZOPHRENIA, PARANOID TYPE
     Route: 048
     Dates: start: 20000327
  2. CLOZARIL [Suspect]
     Indication: SCHIZOPHRENIA
     Dosage: 300 mg/day
     Route: 048
     Dates: start: 20010701
  3. CLOZARIL [Suspect]
     Dosage: 300 mg/day
     Route: 048
     Dates: start: 2003
  4. CLOZARIL [Suspect]
     Dosage: UNK UKN, UNK
     Dates: end: 20120915
  5. ARIPIPRAZOLE [Concomitant]
     Indication: SCHIZOPHRENIA, PARANOID TYPE
     Dosage: 10 mg/day
     Route: 048
     Dates: start: 20090729
  6. FLUOXETINE [Concomitant]
     Indication: DEPRESSION
     Dosage: 80 mg/day
     Route: 048
     Dates: start: 2005
  7. DIAZEPAM [Concomitant]
     Indication: ANXIETY
     Dosage: 15 mg, PRN
     Route: 048
     Dates: start: 2009
  8. RANITIDINE [Concomitant]
     Route: 065

REACTIONS (4)
  - Testicular mass [Unknown]
  - Chronic myeloid leukaemia [Not Recovered/Not Resolved]
  - Myeloproliferative disorder [Not Recovered/Not Resolved]
  - Haemoglobin decreased [Unknown]
